FAERS Safety Report 4513258-5 (Version None)
Quarter: 2004Q4

REPORT INFORMATION
  Report Type: 
  Country: None (occurrence: None)
  Receive Date: 20041124
  Receipt Date: 20041117
  Transmission Date: 20050328
  Serious: Yes (Hospitalization, Other)
  Sender: FDA-Public Use
  Company Number: FRWYE207917NOV04

PATIENT
  Age: 15 Year
  Sex: Male

DRUGS (1)
  1. MINOCIN [Suspect]
     Indication: ACNE
     Dosage: 100 MG 1X PER 1 DAY
     Route: 048
     Dates: start: 20040925, end: 20041010

REACTIONS (6)
  - ARTHRALGIA [None]
  - ERYTHEMA MULTIFORME [None]
  - HYPERSENSITIVITY [None]
  - PYREXIA [None]
  - SYSTEMIC INFLAMMATORY RESPONSE SYNDROME [None]
  - THROMBOCYTOPENIA [None]
